FAERS Safety Report 19777421 (Version 2)
Quarter: 2021Q3

REPORT INFORMATION
  Report Type: Spontaneous
  Country: US (occurrence: US)
  Receive Date: 20210901
  Receipt Date: 20210910
  Transmission Date: 20211014
  Serious: No
  Sender: FDA-Public Use
  Company Number: US-UNITED THERAPEUTICS-UNT-2021-014720

PATIENT
  Sex: Male
  Weight: 70.3 kg

DRUGS (7)
  1. SILDENAFIL CITRATE. [Concomitant]
     Active Substance: SILDENAFIL CITRATE
     Indication: PRODUCT USED FOR UNKNOWN INDICATION
     Dosage: UNK
     Route: 065
  2. TYVASO [Suspect]
     Active Substance: TREPROSTINIL
     Indication: PULMONARY ARTERIAL HYPERTENSION
     Dosage: UNK
     Dates: start: 20210728
  3. TYVASO [Suspect]
     Active Substance: TREPROSTINIL
     Dosage: 6 ?G
     Dates: start: 2021
  4. AMLODIPINE [Concomitant]
     Active Substance: AMLODIPINE BESYLATE
     Indication: PRODUCT USED FOR UNKNOWN INDICATION
     Dosage: UNK
     Route: 065
  5. TYVASO [Suspect]
     Active Substance: TREPROSTINIL
     Dosage: 12 ?G
     Dates: start: 2021, end: 2021
  6. TYVASO [Suspect]
     Active Substance: TREPROSTINIL
     Dosage: 18?54 ?G, QID
     Dates: start: 2021
  7. TYVASO [Suspect]
     Active Substance: TREPROSTINIL
     Dosage: UNK
     Dates: start: 2021

REACTIONS (10)
  - Fatigue [Unknown]
  - Oropharyngeal pain [Unknown]
  - Therapy cessation [Unknown]
  - Somnolence [Unknown]
  - Arthralgia [Unknown]
  - Productive cough [Not Recovered/Not Resolved]
  - Chest pain [Unknown]
  - Dyspnoea exertional [Unknown]
  - Cough [Unknown]
  - Diarrhoea [Unknown]

NARRATIVE: CASE EVENT DATE: 2021
